FAERS Safety Report 17748080 (Version 1)
Quarter: 2020Q2

REPORT INFORMATION
  Report Type: Spontaneous
  Country: US (occurrence: US)
  Receive Date: 20200505
  Receipt Date: 20200505
  Transmission Date: 20200714
  Serious: No
  Sender: FDA-Public Use
  Company Number: US-ROCHE-2470955

PATIENT
  Age: 92 Year
  Sex: Male
  Weight: 83.99 kg

DRUGS (2)
  1. ESBRIET [Suspect]
     Active Substance: PIRFENIDONE
     Dosage: ONE TABLET TAKEN 3 TIMES A DAY ;ONGOING: NO
     Route: 048
     Dates: start: 201907, end: 2019
  2. ESBRIET [Suspect]
     Active Substance: PIRFENIDONE
     Indication: IDIOPATHIC PULMONARY FIBROSIS
     Dosage: THREE CAPSULES TAKEN 3 TIMES A DAY ;ONGOING: NO
     Route: 048
     Dates: start: 201704, end: 201907

REACTIONS (4)
  - Rash [Unknown]
  - Skin irritation [Unknown]
  - Pruritus [Unknown]
  - Hallucination [Unknown]

NARRATIVE: CASE EVENT DATE: 20191106
